FAERS Safety Report 10069154 (Version 1)
Quarter: 2014Q2

REPORT INFORMATION
  Report Type: Spontaneous
  Country: IT (occurrence: IT)
  Receive Date: 20140409
  Receipt Date: 20140409
  Transmission Date: 20141212
  Serious: Yes (Hospitalization)
  Sender: FDA-Public Use
  Company Number: PHHY2014IT041312

PATIENT
  Age: 68 Year
  Sex: Female

DRUGS (7)
  1. METFORMIN [Suspect]
     Indication: TYPE 2 DIABETES MELLITUS
     Dosage: 2 G, QD
     Route: 048
  2. TIKLID [Concomitant]
  3. VICTOZA [Concomitant]
     Route: 058
  4. LEVOTHYROXINE [Concomitant]
     Route: 048
  5. ESOMEPRAZOLE [Concomitant]
     Route: 048
  6. ACETYLSALICYLIC ACID [Concomitant]
     Route: 048
  7. ROSUVASTATIN [Concomitant]

REACTIONS (3)
  - Anuria [Recovering/Resolving]
  - Metabolic acidosis [Recovering/Resolving]
  - Bradykinesia [Recovering/Resolving]
